FAERS Safety Report 8510693 (Version 3)
Quarter: 2013Q1

REPORT INFORMATION
  Report Type: Report from Study
  Country: FR (occurrence: FR)
  Receive Date: 20120413
  Receipt Date: 20130214
  Transmission Date: 20140127
  Serious: Yes (Hospitalization)
  Sender: FDA-Public Use
  Company Number: FR-ROCHE-1055853

PATIENT
  Age: 59 Year
  Sex: Female
  Weight: 42 kg

DRUGS (10)
  1. TMC435 [Suspect]
     Indication: CHRONIC HEPATITIS C
     Dosage: QD
     Route: 048
     Dates: start: 20120125
  2. RIBAVIRIN [Suspect]
     Indication: CHRONIC HEPATITIS C
     Dosage: DAILY
     Route: 048
     Dates: start: 20120125
  3. PEG-INTERFERON ALFA 2A [Suspect]
     Indication: CHRONIC HEPATITIS C
     Route: 058
     Dates: start: 20120125
  4. OPTRUMA [Concomitant]
     Indication: OSTEOPOROSIS
     Route: 048
  5. INEXIUM [Concomitant]
     Indication: GASTROOESOPHAGEAL REFLUX DISEASE
     Route: 048
  6. AMLOR [Concomitant]
     Indication: ANGINA PECTORIS
     Route: 048
  7. NISIS [Concomitant]
     Indication: HYPERTENSION
     Route: 048
  8. NATISPRAY [Concomitant]
     Indication: ANGINA PECTORIS
     Dosage: ONCE DAILY, INHALATION
     Route: 065
  9. KARDEGIC [Concomitant]
     Route: 048
  10. BETAMETHASONE [Concomitant]
     Dosage: 1
     Route: 061
     Dates: start: 20120206

REACTIONS (1)
  - General physical health deterioration [Recovered/Resolved]
